FAERS Safety Report 9883637 (Version 1)
Quarter: 2014Q1

REPORT INFORMATION
  Report Type: Spontaneous
  Country: US (occurrence: US)
  Receive Date: 20140210
  Receipt Date: 20140210
  Transmission Date: 20141002
  Serious: Yes (Hospitalization)
  Sender: FDA-Public Use
  Company Number: US-AMGEN-USASP2014007850

PATIENT
  Age: 70 Year
  Sex: Male

DRUGS (2)
  1. ENBREL [Suspect]
     Indication: RHEUMATOID ARTHRITIS
     Dosage: 50 MG, WEEKLY
     Route: 065
     Dates: start: 20130506, end: 20131028
  2. METHOTREXATE [Concomitant]
     Dosage: UNK

REACTIONS (15)
  - Dyspnoea [Recovered/Resolved]
  - Asthma [Recovered/Resolved]
  - Shock [Recovered/Resolved]
  - Feeling cold [Recovered/Resolved]
  - Multi-organ failure [Recovered/Resolved]
  - Tremor [Recovered/Resolved]
  - Sepsis [Recovered/Resolved]
  - Pneumonia [Recovered/Resolved]
  - Lung disorder [Unknown]
  - Hypersensitivity [Not Recovered/Not Resolved]
  - Oxygen saturation abnormal [Recovered/Resolved]
  - Nasal congestion [Not Recovered/Not Resolved]
  - Condition aggravated [Not Recovered/Not Resolved]
  - Joint lock [Not Recovered/Not Resolved]
  - Limb discomfort [Not Recovered/Not Resolved]
